FAERS Safety Report 6228893-6 (Version None)
Quarter: 2009Q2

REPORT INFORMATION
  Report Type: 
  Country: None (occurrence: None)
  Receive Date: 20090615
  Receipt Date: 20090603
  Transmission Date: 20091009
  Serious: Yes (Other)
  Sender: FDA-Public Use
  Company Number: US-ROCHE-626661

PATIENT
  Sex: Female
  Weight: 54.4 kg

DRUGS (2)
  1. PEGASYS [Suspect]
     Indication: HEPATITIS C
     Dosage: FORM: SYRINGE
     Route: 058
     Dates: start: 20050625, end: 20051219
  2. RIBAVIRIN [Suspect]
     Indication: HEPATITIS C
     Route: 048
     Dates: start: 20050625, end: 20051219

REACTIONS (3)
  - ALANINE AMINOTRANSFERASE INCREASED [None]
  - FIBROSIS [None]
  - HEPATIC STEATOSIS [None]
